FAERS Safety Report 7240468-9 (Version None)
Quarter: 2011Q1

REPORT INFORMATION
  Report Type: 
  Country: None (occurrence: None)
  Receive Date: 20110119
  Receipt Date: 20110119
  Transmission Date: 20110831
  Serious: Yes (Life-Threatening)
  Sender: FDA-Public Use
  Company Number: None

PATIENT
  Age: 53 Year
  Sex: Female
  Weight: 92.0802 kg

DRUGS (1)
  1. CELEXA [Suspect]
     Indication: DEPRESSION
     Dosage: 20MG DAILY OTHER
     Route: 050
     Dates: start: 20110108, end: 20110117

REACTIONS (3)
  - NEUROLEPTIC MALIGNANT SYNDROME [None]
  - HYPOTENSION [None]
  - RESPIRATORY DISTRESS [None]
